FAERS Safety Report 21882368 (Version 5)
Quarter: 2024Q1

REPORT INFORMATION
  Report Type: Spontaneous
  Country: DE (occurrence: DE)
  Receive Date: 20230119
  Receipt Date: 20240207
  Transmission Date: 20240410
  Serious: Yes (Hospitalization, Other)
  Sender: FDA-Public Use
  Company Number: None

PATIENT
  Age: 46 Year
  Sex: Male

DRUGS (1)
  1. FINGOLIMOD [Suspect]
     Active Substance: FINGOLIMOD
     Indication: Relapsing-remitting multiple sclerosis
     Dosage: 0.5 MILLIGRAM (CAPSULE, HARD)
     Route: 065

REACTIONS (9)
  - Gastrointestinal haemorrhage [Unknown]
  - Haematuria [Recovered/Resolved]
  - Urinary retention [Recovered/Resolved]
  - Proctitis [Unknown]
  - Hyperbilirubinaemia [Unknown]
  - Cellulitis [Unknown]
  - Leukopenia [Recovered/Resolved]
  - Monkeypox [Recovered/Resolved]
  - Lymphopenia [Recovered/Resolved]

NARRATIVE: CASE EVENT DATE: 20220101
